FAERS Safety Report 5649714-6 (Version None)
Quarter: 2008Q1

REPORT INFORMATION
  Report Type: 
  Country: None (occurrence: None)
  Receive Date: 20080131
  Receipt Date: 20071113
  Transmission Date: 20080703
  Serious: No
  Sender: FDA-Public Use
  Company Number: US200711003174

PATIENT
  Age: 58 Year
  Sex: Male

DRUGS (3)
  1. BYETTA [Suspect]
     Indication: TYPE 2 DIABETES MELLITUS
     Dosage: 5UG, 2/D, SUBCUTANEOUS; 10 UG, 2/D SUBCUTANEOUS
     Route: 058
     Dates: start: 20060601, end: 20070301
  2. BYETTA [Suspect]
     Indication: TYPE 2 DIABETES MELLITUS
     Dosage: 5UG, 2/D, SUBCUTANEOUS; 10 UG, 2/D SUBCUTANEOUS
     Route: 058
     Dates: start: 20070301
  3. METFORMIN HCL [Concomitant]

REACTIONS (1)
  - BLOOD GLUCOSE FLUCTUATION [None]
